FAERS Safety Report 6562598-7 (Version None)
Quarter: 2010Q1

REPORT INFORMATION
  Report Type: 
  Country: None (occurrence: None)
  Receive Date: 20100130
  Receipt Date: 20091119
  Transmission Date: 20100710
  Serious: No
  Sender: FDA-Public Use
  Company Number: US-ABBOTT-09P-163-0610046-00

PATIENT
  Age: 30 Year
  Sex: Male

DRUGS (3)
  1. HUMIRA [Suspect]
     Indication: CROHN'S DISEASE
  2. AZOTHIAPRINE [Suspect]
     Indication: CROHN'S DISEASE
  3. AZOTHIAPRINE [Suspect]
     Dosage: UNKNOWN DOSE

REACTIONS (1)
  - RASH [None]
